FAERS Safety Report 25206154 (Version 2)
Quarter: 2025Q2

REPORT INFORMATION
  Report Type: Spontaneous
  Country: US (occurrence: US)
  Receive Date: 20250417
  Receipt Date: 20250521
  Transmission Date: 20250716
  Serious: No
  Sender: JOHNSON AND JOHNSON
  Company Number: US-JNJFOC-20250406376

PATIENT

DRUGS (2)
  1. INVEGA [Suspect]
     Active Substance: PALIPERIDONE
     Indication: Product used for unknown indication
  2. INVEGA [Suspect]
     Active Substance: PALIPERIDONE

REACTIONS (6)
  - Therapeutic product effect decreased [Unknown]
  - Symptom recurrence [Unknown]
  - Needle issue [Unknown]
  - Impaired work ability [Unknown]
  - Memory impairment [Unknown]
  - Therapy change [Unknown]
